FAERS Safety Report 14162674 (Version 1)
Quarter: 2017Q4

REPORT INFORMATION
  Report Type: Spontaneous
  Country: US (occurrence: US)
  Receive Date: 20171106
  Receipt Date: 20171106
  Transmission Date: 20180321
  Serious: Yes (Hospitalization)
  Sender: FDA-Public Use
  Company Number: US-PIRAMAL CRITICAL CARE LIMITED-T201502159

PATIENT

DRUGS (13)
  1. DILAUDID [Suspect]
     Active Substance: HYDROMORPHONE HYDROCHLORIDE
     Indication: PRODUCT USED FOR UNKNOWN INDICATION
     Dosage: 0.3 MG/ML; 0.08403 MG/DAY
     Route: 037
  2. BACLOFEN. [Concomitant]
     Active Substance: BACLOFEN
     Dosage: 20 MG; 1 TAB FOUR TIMES A DAY
     Route: 048
  3. LISINOPRIL. [Concomitant]
     Active Substance: LISINOPRIL
     Dosage: 30 MG; 1 TAB QD
     Route: 048
  4. LYRICA [Concomitant]
     Active Substance: PREGABALIN
     Dosage: 25 MG; 1 TAB QD
     Route: 048
  5. DESIPRAMINE HCL [Concomitant]
     Active Substance: DESIPRAMINE HYDROCHLORIDE
     Dosage: 25 MG; 1 TAB EVERY BEDTIME
     Route: 048
  6. GABLOFEN [Suspect]
     Active Substance: BACLOFEN
     Dosage: 1,000 MCG/ML, FLEX DOSE, AT 150 MCG/DAY
     Route: 037
     Dates: start: 20150312
  7. CLONIDINE. [Suspect]
     Active Substance: CLONIDINE
     Indication: PRODUCT USED FOR UNKNOWN INDICATION
     Dosage: 200.0 MCG/ML; 56.02 MCG/DAY
     Route: 037
  8. GABLOFEN [Suspect]
     Active Substance: BACLOFEN
     Indication: MUSCLE SPASTICITY
     Dosage: 1,000 MCG/ML AT 125 MCG/DAY
     Route: 037
     Dates: start: 20150311
  9. GABLOFEN [Suspect]
     Active Substance: BACLOFEN
     Dosage: 500 MCG/ML AT 149.85 MCG/DAY
     Route: 037
     Dates: start: 20150409
  10. GABLOFEN [Suspect]
     Active Substance: BACLOFEN
     Dosage: 500 MCG/ML; 140.05 MCG/DAY
     Route: 037
     Dates: start: 20150804
  11. FENTANYL. [Suspect]
     Active Substance: FENTANYL
     Indication: PRODUCT USED FOR UNKNOWN INDICATION
     Dosage: 14.985MCG/DAY
     Route: 037
     Dates: start: 20150409
  12. HYDROCODONE BITARTRATE AND ACETAMINOPHEN [Concomitant]
     Active Substance: ACETAMINOPHEN\HYDROCODONE BITARTRATE
     Indication: PAIN
     Dosage: 3/325 MG; 1 TAB Q6H PRN
     Route: 048
  13. MIRTAZAPINE. [Concomitant]
     Active Substance: MIRTAZAPINE
     Dosage: 15 MG; TAKE 0.5 - 1 TABLE (7.5 MG) EVERY DAY BEFORE BEDTIME

REACTIONS (11)
  - Blood pressure fluctuation [Recovered/Resolved]
  - Cerebrospinal fluid leakage [Not Recovered/Not Resolved]
  - Off label use [Unknown]
  - Blood pressure decreased [Recovered/Resolved]
  - Sedation [Recovered/Resolved]
  - Headache [Recovered/Resolved]
  - Lethargy [Recovered/Resolved]
  - Asthenia [Recovered/Resolved]
  - Anxiety [Recovered/Resolved]
  - Syncope [Recovered/Resolved]
  - Fatigue [Recovered/Resolved]

NARRATIVE: CASE EVENT DATE: 20150313
